FAERS Safety Report 24165883 (Version 1)
Quarter: 2024Q3

REPORT INFORMATION
  Report Type: Other
  Country: FR (occurrence: FR)
  Receive Date: 20240802
  Receipt Date: 20240802
  Transmission Date: 20241017
  Serious: Yes (Hospitalization)
  Sender: ZYDUS PHARM
  Company Number: None

PATIENT

DRUGS (3)
  1. ATENOLOL [Suspect]
     Active Substance: ATENOLOL
     Indication: Heart failure with preserved ejection fraction
     Dosage: 100 MILLIGRAM, QD
     Route: 048
     Dates: end: 20240614
  2. IRBESARTAN [Interacting]
     Active Substance: IRBESARTAN
     Indication: Heart failure with preserved ejection fraction
     Dosage: 300 MILLIGRAM, QD
     Route: 048
     Dates: end: 20240614
  3. ALDACTONE [Interacting]
     Active Substance: SPIRONOLACTONE
     Indication: Heart failure with preserved ejection fraction
     Dosage: 0.5 DOSAGE FORM, QD
     Route: 048
     Dates: end: 20240614

REACTIONS (2)
  - Hyperkalaemia [Recovering/Resolving]
  - Bradycardia [Recovered/Resolved]

NARRATIVE: CASE EVENT DATE: 20240614
